FAERS Safety Report 15554287 (Version 2)
Quarter: 2018Q4

REPORT INFORMATION
  Report Type: Spontaneous
  Country: US (occurrence: US)
  Receive Date: 20181026
  Receipt Date: 20181207
  Transmission Date: 20190205
  Serious: No
  Sender: FDA-Public Use
  Company Number: US-PFIZER INC-2018428359

PATIENT
  Sex: Male

DRUGS (1)
  1. ADVIL LIQUI-GELS [Suspect]
     Active Substance: IBUPROFEN
     Indication: ARTHRITIS
     Dosage: 6 DF, DAILY

REACTIONS (4)
  - Product taste abnormal [Unknown]
  - Product quality issue [Unknown]
  - Dysgeusia [Unknown]
  - Poor quality product administered [Unknown]
